FAERS Safety Report 22962192 (Version 6)
Quarter: 2025Q1

REPORT INFORMATION
  Report Type: Report from Study
  Country: US (occurrence: US)
  Receive Date: 20230920
  Receipt Date: 20250311
  Transmission Date: 20250409
  Serious: Yes (Hospitalization, Other)
  Sender: TAKEDA
  Company Number: US-TAKEDA-2023TUS090878

PATIENT
  Age: 53 Year
  Sex: Male
  Weight: 98 kg

DRUGS (25)
  1. HUMAN IMMUNOGLOBULIN G [Suspect]
     Active Substance: HUMAN IMMUNOGLOBULIN G
     Indication: Immunodeficiency common variable
     Dosage: 30 GRAM, MONTHLY
     Dates: start: 20220401
  2. HUMAN IMMUNOGLOBULIN G [Suspect]
     Active Substance: HUMAN IMMUNOGLOBULIN G
     Indication: Plasma cell myeloma refractory
  3. BACLOFEN [Suspect]
     Active Substance: BACLOFEN
     Indication: Product used for unknown indication
  4. POMALYST [Concomitant]
     Active Substance: POMALIDOMIDE
  5. XGEVA [Concomitant]
     Active Substance: DENOSUMAB
  6. PROMACTA [Concomitant]
     Active Substance: ELTROMBOPAG OLAMINE
  7. RETACRIT [Concomitant]
     Active Substance: EPOETIN ALFA-EPBX
  8. FULPHILA [Concomitant]
     Active Substance: PEGFILGRASTIM-JMDB
  9. REVLIMID [Concomitant]
     Active Substance: LENALIDOMIDE
  10. CARVEDILOL [Concomitant]
     Active Substance: CARVEDILOL
  11. FOLBIC [Concomitant]
     Active Substance: CYANOCOBALAMIN\FOLIC ACID\PYRIDOXINE
  12. DARZALEX FASPRO [Concomitant]
     Active Substance: DARATUMUMAB\HYALURONIDASE-FIHJ
  13. ACYCLOVIR [Concomitant]
     Active Substance: ACYCLOVIR
  14. LISINOPRIL [Concomitant]
     Active Substance: LISINOPRIL
  15. MORPHINE SULFATE [Concomitant]
     Active Substance: MORPHINE SULFATE
  16. TYLENOL [Concomitant]
     Active Substance: ACETAMINOPHEN
  17. ALLEGRA ALLERGY [Concomitant]
     Active Substance: FEXOFENADINE HYDROCHLORIDE
  18. SULFAMETHOXAZOLE AND TRIMETHOPRIM [Concomitant]
     Active Substance: SULFAMETHOXAZOLE\TRIMETHOPRIM
  19. METHYLPREDNISOLONE [Concomitant]
     Active Substance: METHYLPREDNISOLONE
  20. NPLATE [Concomitant]
     Active Substance: ROMIPLOSTIM
  21. STERILE WATER FOR INJECTION [Concomitant]
     Active Substance: WATER
  22. KEPPRA [Concomitant]
     Active Substance: LEVETIRACETAM
  23. LEVOFLOXACIN [Concomitant]
     Active Substance: LEVOFLOXACIN
  24. DIAZEPAM [Concomitant]
     Active Substance: DIAZEPAM
  25. ZYRTEC [Concomitant]
     Active Substance: CETIRIZINE HYDROCHLORIDE

REACTIONS (11)
  - Spinal cord compression [Unknown]
  - Plasma cell myeloma in remission [Unknown]
  - Spinal cord injury [Unknown]
  - Seizure [Unknown]
  - Product dose omission issue [Unknown]
  - Onychomadesis [Unknown]
  - Inflammation [Unknown]
  - Product use in unapproved indication [Unknown]
  - Muscle spasms [Unknown]
  - Pain in extremity [Unknown]
  - Erythema [Unknown]

NARRATIVE: CASE EVENT DATE: 20220401
